FAERS Safety Report 5555362-9 (Version None)
Quarter: 2007Q4

REPORT INFORMATION
  Report Type: 
  Country: None (occurrence: None)
  Receive Date: 20071213
  Receipt Date: 20070815
  Transmission Date: 20080405
  Serious: No
  Sender: FDA-Public Use
  Company Number: US-AMGEN-KDL239109

PATIENT
  Sex: Male

DRUGS (1)
  1. ENBREL [Suspect]
     Indication: PSORIASIS
     Route: 058
     Dates: start: 20070301, end: 20070619

REACTIONS (4)
  - DIZZINESS [None]
  - FEELING ABNORMAL [None]
  - MEMORY IMPAIRMENT [None]
  - VISUAL DISTURBANCE [None]
